FAERS Safety Report 7953565-7 (Version None)
Quarter: 2011Q4

REPORT INFORMATION
  Report Type: 
  Country: None (occurrence: None)
  Receive Date: 20111202
  Receipt Date: 20111124
  Transmission Date: 20120403
  Serious: Yes (Death)
  Sender: FDA-Public Use
  Company Number: JP-CELGENEUS-087-50794-11120067

PATIENT
  Sex: Female

DRUGS (1)
  1. VIDAZA [Suspect]
     Dosage: 100 MILLIGRAM
     Route: 065
     Dates: start: 20110905, end: 20110913

REACTIONS (1)
  - PNEUMONIA [None]
